FAERS Safety Report 23922623 (Version 1)
Quarter: 2024Q2

REPORT INFORMATION
  Report Type: Spontaneous
  Country: AU (occurrence: AU)
  Receive Date: 20240531
  Receipt Date: 20240531
  Transmission Date: 20240716
  Serious: Yes (Other)
  Sender: FDA-Public Use
  Company Number: AU-BRISTOL-MYERS SQUIBB COMPANY2023-107144

PATIENT
  Age: 76 Year
  Sex: Male

DRUGS (10)
  1. DARATUMUMAB [Suspect]
     Active Substance: DARATUMUMAB
     Indication: Plasma cell myeloma refractory
     Dosage: 1800 MG (INTERVAL: 2 WEEK)
     Route: 058
     Dates: start: 20230428, end: 20230721
  2. DEXAMETHASONE [Suspect]
     Active Substance: DEXAMETHASONE
     Indication: Plasma cell myeloma refractory
     Dosage: 20 MG (INTERVAL: 1 WEEK)
     Route: 048
     Dates: start: 20230428, end: 202307
  3. ACETAMINOPHEN [Suspect]
     Active Substance: ACETAMINOPHEN
     Indication: Plasma cell myeloma refractory
     Dosage: 1000 MG
     Route: 048
     Dates: start: 20230428
  4. POMALIDOMIDE [Suspect]
     Active Substance: POMALIDOMIDE
     Indication: Plasma cell myeloma refractory
     Dosage: 4 MG (INTERVAL: 1 DAY)
     Route: 048
     Dates: start: 20230428, end: 202307
  5. ENTECAVIR [Concomitant]
     Active Substance: ENTECAVIR
     Indication: Antiviral prophylaxis
     Dosage: UNK
     Route: 048
     Dates: start: 202210
  6. LORATADINE [Concomitant]
     Active Substance: LORATADINE
     Indication: Plasma cell myeloma refractory
     Dosage: 10 MG
     Route: 065
     Dates: start: 20230428
  7. PANTOPRAZOLE [Concomitant]
     Active Substance: PANTOPRAZOLE
     Indication: Gastrooesophageal reflux disease
     Dosage: UNK
     Route: 048
     Dates: start: 2022
  8. SULFAMETHOXAZOLE\TRIMETHOPRIM [Concomitant]
     Active Substance: SULFAMETHOXAZOLE\TRIMETHOPRIM
     Indication: Antifungal prophylaxis
     Dosage: UNK
     Route: 048
     Dates: start: 20230501, end: 20231207
  9. AMLODIPINE BESYLATE\OLMESARTAN MEDOXOMIL [Concomitant]
     Active Substance: AMLODIPINE BESYLATE\OLMESARTAN MEDOXOMIL
     Indication: Hypertension
     Dosage: UNK
     Route: 048
     Dates: start: 2003
  10. ZOMETA [Concomitant]
     Active Substance: ZOLEDRONIC ACID
     Indication: Prophylaxis
     Dosage: UNK
     Route: 042
     Dates: start: 20230526, end: 20230721

REACTIONS (1)
  - Pneumonia staphylococcal [Recovered/Resolved]

NARRATIVE: CASE EVENT DATE: 20230728
